FAERS Safety Report 7655000-5 (Version None)
Quarter: 2011Q3

REPORT INFORMATION
  Report Type: 
  Country: None (occurrence: None)
  Receive Date: 20110728
  Receipt Date: 20110713
  Transmission Date: 20111222
  Serious: Yes (Death, Other)
  Sender: FDA-Public Use
  Company Number: AUR-APL-2011-03605

PATIENT
  Age: 66 Year
  Sex: Female

DRUGS (6)
  1. CITALOPRAM (CITALOPRAM) [Suspect]
     Indication: PRODUCT USED FOR UNKNOWN INDICATION
     Dosage: 20 MG
     Dates: start: 20070401
  2. ASPIRIN [Concomitant]
  3. ATORVASTATIN [Concomitant]
  4. LEVOTHYROXINE SODIUM [Concomitant]
  5. MIRTAZAPINE [Suspect]
     Indication: DEPRESSION
     Dosage: (45 MG) (30 MG) (15 MG), ORAL
     Route: 048
     Dates: start: 20070527
  6. LITHIUM CARBONATE [Concomitant]

REACTIONS (12)
  - UNEVALUABLE EVENT [None]
  - ANXIETY [None]
  - ASPHYXIA [None]
  - PERSONALITY DISORDER [None]
  - SEROTONIN SYNDROME [None]
  - CONDITION AGGRAVATED [None]
  - ACTIVITIES OF DAILY LIVING IMPAIRED [None]
  - AGITATION [None]
  - INAPPROPRIATE SCHEDULE OF DRUG ADMINISTRATION [None]
  - COMPLETED SUICIDE [None]
  - CONFUSIONAL STATE [None]
  - OVERDOSE [None]
